FAERS Safety Report 8360247-9 (Version None)
Quarter: 2012Q2

REPORT INFORMATION
  Report Type: 
  Country: None (occurrence: None)
  Receive Date: 20120515
  Receipt Date: 20120507
  Transmission Date: 20120825
  Serious: Yes (Hospitalization)
  Sender: FDA-Public Use
  Company Number: US-BAYER-2012-003776

PATIENT
  Age: 32 Year
  Sex: Female
  Weight: 117.91 kg

DRUGS (4)
  1. YAZ [Suspect]
     Indication: CONTRACEPTION
     Dosage: UNK
     Dates: start: 20060101, end: 20091201
  2. YAZ [Suspect]
     Indication: MENSTRUATION IRREGULAR
  3. YASMIN [Suspect]
     Indication: CONTRACEPTION
     Dosage: UNK
     Dates: start: 20060101, end: 20091201
  4. YASMIN [Suspect]
     Indication: MENSTRUATION IRREGULAR

REACTIONS (7)
  - ABDOMINAL PAIN UPPER [None]
  - BILIARY DILATATION [None]
  - EMOTIONAL DISTRESS [None]
  - CHOLECYSTITIS [None]
  - BILE DUCT STONE [None]
  - VOMITING [None]
  - INJURY [None]
